FAERS Safety Report 4780875-7 (Version None)
Quarter: 2005Q3

REPORT INFORMATION
  Report Type: 
  Country: None (occurrence: None)
  Receive Date: 20050914
  Receipt Date: 20050308
  Transmission Date: 20060218
  Serious: Yes (Death)
  Sender: FDA-Public Use
  Company Number: 163-20785-05030198

PATIENT
  Age: 63 Year

DRUGS (2)
  1. THALOMID [Suspect]
     Indication: MULTIPLE MYELOMA
     Dosage: 100 MG, DAILY, ORAL; 50 MG, DAILY, ORAL
     Route: 048
     Dates: start: 20040909, end: 20041220
  2. THALOMID [Suspect]
     Indication: MULTIPLE MYELOMA
     Dosage: 100 MG, DAILY, ORAL; 50 MG, DAILY, ORAL
     Route: 048
     Dates: start: 20021111

REACTIONS (1)
  - SEPSIS [None]
